FAERS Safety Report 9889793 (Version 2)
Quarter: 2014Q1

REPORT INFORMATION
  Report Type: Report from Study
  Country: US (occurrence: US)
  Receive Date: 20140212
  Receipt Date: 20140212
  Transmission Date: 20141002
  Serious: Yes (Hospitalization)
  Sender: FDA-Public Use
  Company Number: US-ROCHE-1302811

PATIENT
  Age: 95 Year
  Sex: Female

DRUGS (1)
  1. LUCENTIS [Suspect]
     Indication: RETINAL OEDEMA
     Route: 065

REACTIONS (4)
  - Cardiac failure congestive [Unknown]
  - Visual acuity reduced [Unknown]
  - Visual impairment [Unknown]
  - Injection site pain [Unknown]
